FAERS Safety Report 8883350 (Version 10)
Quarter: 2017Q4

REPORT INFORMATION
  Report Type: Spontaneous
  Country: US (occurrence: US)
  Receive Date: 20121102
  Receipt Date: 20171207
  Transmission Date: 20180321
  Serious: Yes (Hospitalization, Other)
  Sender: FDA-Public Use
  Company Number: US-009507513-1210USA010425

PATIENT
  Sex: Female
  Weight: 52.15 kg

DRUGS (9)
  1. LEVOTHYROXINE SODIUM. [Concomitant]
     Active Substance: LEVOTHYROXINE SODIUM
     Indication: HYPOTHYROIDISM
     Dosage: UNK
     Route: 065
     Dates: start: 1970
  2. LIPITOR [Concomitant]
     Active Substance: ATORVASTATIN CALCIUM
     Indication: HYPERLIPIDAEMIA
     Dosage: 20 MG, HS
     Route: 065
  3. FOSAMAX [Suspect]
     Active Substance: ALENDRONATE SODIUM
     Indication: OSTEOPOROSIS
     Dosage: 70 MG, QW
     Route: 048
     Dates: start: 20030127, end: 20070123
  4. ALENDRONATE SODIUM. [Suspect]
     Active Substance: ALENDRONATE SODIUM
     Indication: OSTEOPOROSIS
     Dosage: 70 MG, QW
     Dates: start: 20081028, end: 201107
  5. SYNTHROID [Concomitant]
     Active Substance: LEVOTHYROXINE SODIUM
     Indication: HYPOTHYROIDISM
     Dosage: 75 MICROGRAM, QD
     Route: 065
     Dates: start: 1970
  6. NASONEX [Concomitant]
     Active Substance: MOMETASONE FUROATE
     Indication: ALLERGIC SINUSITIS
     Dosage: UNK, PRN
     Route: 065
  7. FOSAMAX [Suspect]
     Active Substance: ALENDRONATE SODIUM
     Dosage: 70 MG, QW
     Route: 048
     Dates: start: 20070213, end: 200709
  8. FOSAMAX PLUS D [Suspect]
     Active Substance: ALENDRONATE SODIUM\CHOLECALCIFEROL
     Indication: OSTEOPOROSIS
     Dosage: 70MG-2800MG
     Route: 048
     Dates: start: 20071008, end: 200810
  9. ZYRTEC [Concomitant]
     Active Substance: CETIRIZINE HYDROCHLORIDE
     Indication: ALLERGIC SINUSITIS
     Dosage: UNK
     Route: 065

REACTIONS (33)
  - Femur fracture [Recovered/Resolved]
  - Cardiac murmur [Unknown]
  - Osteoarthritis [Unknown]
  - Osteopenia [Unknown]
  - Musculoskeletal discomfort [Unknown]
  - Pain in extremity [Unknown]
  - Sinusitis [Recovering/Resolving]
  - Atrophic vulvovaginitis [Unknown]
  - Kyphosis [Unknown]
  - Autoimmune thyroiditis [Unknown]
  - Spinal deformity [Unknown]
  - Muscular weakness [Unknown]
  - Osteopetrosis [Unknown]
  - Rhinitis allergic [Unknown]
  - Body height decreased [Unknown]
  - Balance disorder [Unknown]
  - Endodontic procedure [Unknown]
  - Skin cancer [Unknown]
  - Low turnover osteopathy [Unknown]
  - Cardiac valve disease [Unknown]
  - Gastritis [Recovering/Resolving]
  - Vitamin D deficiency [Unknown]
  - Constipation [Recovered/Resolved]
  - Wrist fracture [Unknown]
  - Calcium deficiency [Recovered/Resolved]
  - Vitamin D deficiency [Unknown]
  - Hypervitaminosis [Unknown]
  - Goitre [Unknown]
  - Aortic calcification [Unknown]
  - Dilatation atrial [Unknown]
  - Exostosis [Unknown]
  - Blood thyroid stimulating hormone increased [Unknown]
  - Cataract operation [Unknown]

NARRATIVE: CASE EVENT DATE: 20050826
